FAERS Safety Report 7578082-8 (Version None)
Quarter: 2011Q2

REPORT INFORMATION
  Report Type: 
  Country: None (occurrence: None)
  Receive Date: 20110628
  Receipt Date: 20110615
  Transmission Date: 20111010
  Serious: Yes (Other)
  Sender: FDA-Public Use
  Company Number: US-AMGEN-USASP2011030701

PATIENT
  Sex: Female

DRUGS (1)
  1. PROLIA [Suspect]
     Indication: OSTEOPOROSIS POSTMENOPAUSAL
     Dates: start: 20100701

REACTIONS (11)
  - DIZZINESS [None]
  - SALIVA ALTERED [None]
  - LIP DRY [None]
  - MALAISE [None]
  - DYSPHAGIA [None]
  - DRY THROAT [None]
  - GAIT DISTURBANCE [None]
  - LETHARGY [None]
  - TREMOR [None]
  - DYSPHONIA [None]
  - ASTHENIA [None]
